FAERS Safety Report 13855792 (Version 2)
Quarter: 2017Q4

REPORT INFORMATION
  Report Type: Report from Study
  Country: US (occurrence: US)
  Receive Date: 20170810
  Receipt Date: 20171019
  Transmission Date: 20180320
  Serious: Yes (Hospitalization, Other)
  Sender: FDA-Public Use
  Company Number: US-BAYER-2017-070548

PATIENT
  Age: 79 Year
  Sex: Female

DRUGS (5)
  1. NEXAVAR [Suspect]
     Active Substance: SORAFENIB
     Indication: HEPATIC CANCER
     Dosage: 200 MG, BID, FOR FIRST WEEK
     Dates: start: 20170404, end: 201704
  2. NEXAVAR [Suspect]
     Active Substance: SORAFENIB
     Indication: HEPATIC CANCER
     Dosage: 400 MG, BID
     Route: 048
     Dates: start: 2017
  3. NEXAVAR [Suspect]
     Active Substance: SORAFENIB
     Indication: HEPATIC CANCER
     Dosage: 400 MG, BID
     Dates: start: 201704, end: 2017
  4. NEXAVAR [Suspect]
     Active Substance: SORAFENIB
     Indication: HEPATIC CANCER
     Dosage: 200 MG, BID
     Route: 048
     Dates: start: 2017, end: 2017
  5. NEXAVAR [Suspect]
     Active Substance: SORAFENIB
     Indication: HEPATIC CANCER
     Dosage: 400 MG, BID
     Dates: start: 2017, end: 2017

REACTIONS (16)
  - Walking aid user [None]
  - Tremor [Recovered/Resolved]
  - Pain [Recovered/Resolved]
  - Gastroenteritis viral [Recovered/Resolved]
  - Memory impairment [None]
  - Cough [None]
  - Diarrhoea [None]
  - Dizziness [None]
  - Hepatic cancer [None]
  - Hospitalisation [None]
  - Abdominal pain upper [None]
  - Diarrhoea [Not Recovered/Not Resolved]
  - Dehydration [Recovered/Resolved]
  - Balance disorder [None]
  - Malaise [Not Recovered/Not Resolved]
  - Diarrhoea [Recovered/Resolved]

NARRATIVE: CASE EVENT DATE: 2017
